FAERS Safety Report 7085336-0 (Version None)
Quarter: 2010Q4

REPORT INFORMATION
  Report Type: 
  Country: None (occurrence: None)
  Receive Date: 20101105
  Receipt Date: 20101027
  Transmission Date: 20110411
  Serious: Yes (Other)
  Sender: FDA-Public Use
  Company Number: RU-PFIZER INC-2010125915

PATIENT
  Age: 35 Year
  Sex: Female

DRUGS (2)
  1. DOSTINEX [Suspect]
     Indication: PITUITARY TUMOUR BENIGN
     Dosage: 0.5 MG, 2X/WEEK
     Route: 048
     Dates: start: 20090401, end: 20091201
  2. DOSTINEX [Suspect]
     Dosage: 0.25 MG, WEEKLY
     Route: 048
     Dates: start: 20091201

REACTIONS (5)
  - BACK PAIN [None]
  - CHEST PAIN [None]
  - DISTURBANCE IN ATTENTION [None]
  - DRUG INEFFECTIVE [None]
  - VISUAL ACUITY REDUCED [None]
